FAERS Safety Report 20676730 (Version 1)
Quarter: 2022Q2

REPORT INFORMATION
  Report Type: Report from Study
  Country: US (occurrence: US)
  Receive Date: 20220406
  Receipt Date: 20220406
  Transmission Date: 20220720
  Serious: Yes (Other)
  Sender: FDA-Public Use
  Company Number: US-JNJFOC-20190610275

PATIENT
  Age: 8 Decade
  Sex: Female

DRUGS (2)
  1. XARELTO [Suspect]
     Active Substance: RIVAROXABAN
     Indication: Thrombosis
     Route: 048
     Dates: end: 2019
  2. XARELTO [Suspect]
     Active Substance: RIVAROXABAN
     Indication: Pulmonary embolism
     Dosage: NDC 100000701015
     Route: 048
     Dates: start: 2019

REACTIONS (5)
  - Breast cancer recurrent [Unknown]
  - Product label issue [Unknown]
  - Off label use [Unknown]
  - Incorrect dose administered [Unknown]
  - Epistaxis [Unknown]

NARRATIVE: CASE EVENT DATE: 20190101
